FAERS Safety Report 13361666 (Version 10)
Quarter: 2017Q3

REPORT INFORMATION
  Report Type: Report from Study
  Country: BR (occurrence: BR)
  Receive Date: 20170323
  Receipt Date: 20170823
  Transmission Date: 20171127
  Serious: Yes (Hospitalization)
  Sender: FDA-Public Use
  Company Number: BR-ROCHE-1910183

PATIENT
  Age: 31 Year
  Sex: Female
  Weight: 80 kg

DRUGS (25)
  1. DIPHENHYDRAMINE. [Concomitant]
     Active Substance: DIPHENHYDRAMINE
     Route: 065
     Dates: start: 20170222, end: 20170222
  2. ONDANSETRON [Concomitant]
     Active Substance: ONDANSETRON
     Route: 065
     Dates: start: 20170222, end: 20170222
  3. OMEPRAZOLE. [Concomitant]
     Active Substance: OMEPRAZOLE
     Indication: PROPHYLAXIS
     Route: 065
     Dates: start: 201610, end: 20170313
  4. DIPIRONA [Concomitant]
     Active Substance: METAMIZOLE
     Indication: HEADACHE
     Route: 065
     Dates: start: 20170216, end: 20170222
  5. PLASIL [Concomitant]
     Active Substance: METOCLOPRAMIDE HYDROCHLORIDE
     Route: 065
     Dates: start: 20170217, end: 20170222
  6. CEFALIV [Concomitant]
     Indication: HEADACHE
     Route: 065
     Dates: start: 20170127, end: 20170222
  7. CARBOPLATIN. [Suspect]
     Active Substance: CARBOPLATIN
     Indication: NON-SMALL CELL LUNG CANCER STAGE IV
     Dosage: DOSE PER PROTOCOL AT AUC=6?THE DATE OF THE MOST RECENT DOSE 747 MG: 21/FEB/2017
     Route: 042
     Dates: start: 20161208
  8. TRAMADOL. [Concomitant]
     Active Substance: TRAMADOL
     Indication: HEADACHE
     Route: 065
     Dates: start: 20170216, end: 20170222
  9. XARELTO [Concomitant]
     Active Substance: RIVAROXABAN
     Indication: EMBOLISM
     Route: 065
     Dates: start: 20170331, end: 20170409
  10. ATEZOLIZUMAB. [Suspect]
     Active Substance: ATEZOLIZUMAB
     Indication: NON-SMALL CELL LUNG CANCER STAGE IV
     Dosage: THE DATE OF THE MOST RECENT DOSE: 15/MAR/2017.?DAY 1 OF EACH 21-DAY CYCLE
     Route: 042
     Dates: start: 20161208
  11. PACLITAXEL. [Suspect]
     Active Substance: PACLITAXEL
     Indication: NON-SMALL CELL LUNG CANCER STAGE IV
     Dosage: THE DATE OF THE MOST RECENT DOSE 288 MG 21/FEB/2017
     Route: 042
     Dates: start: 20161208
  12. RANITIDINE. [Concomitant]
     Active Substance: RANITIDINE
     Route: 065
     Dates: start: 20170222, end: 20170222
  13. CLEXANE [Concomitant]
     Active Substance: ENOXAPARIN SODIUM
     Dosage: FULL DOSE
     Route: 065
     Dates: start: 20170410
  14. ESOMEPRAZOLE [Concomitant]
     Active Substance: ESOMEPRAZOLE
     Indication: ABDOMINAL PAIN UPPER
     Route: 065
     Dates: start: 20170314
  15. ASPIRINA [Concomitant]
     Active Substance: ASPIRIN
     Indication: CEREBRAL ISCHAEMIA
     Route: 065
     Dates: start: 20170316
  16. OLANZAPINE. [Concomitant]
     Active Substance: OLANZAPINE
     Route: 065
     Dates: start: 20170222, end: 20170222
  17. ASPIRINA [Concomitant]
     Active Substance: ASPIRIN
     Indication: EMBOLISM
  18. BEVACIZUMAB. [Suspect]
     Active Substance: BEVACIZUMAB
     Indication: NON-SMALL CELL LUNG CANCER STAGE IV
     Dosage: THE DATE OF THE MOST RECENT DOSE 1170 MG 26/JAN/2017
     Route: 042
     Dates: start: 20161208
  19. CLEXANE [Concomitant]
     Active Substance: ENOXAPARIN SODIUM
     Route: 065
     Dates: start: 20170527
  20. XARELTO [Concomitant]
     Active Substance: RIVAROXABAN
     Indication: EMBOLISM VENOUS
  21. ASPIRINA [Concomitant]
     Active Substance: ASPIRIN
     Indication: EMBOLISM VENOUS
     Route: 065
     Dates: start: 20170527
  22. PATZ [Concomitant]
     Indication: INSOMNIA
     Route: 065
     Dates: start: 20161101, end: 20170316
  23. CLEXANE [Concomitant]
     Active Substance: ENOXAPARIN SODIUM
     Indication: EMBOLISM VENOUS
     Route: 065
     Dates: start: 20170216, end: 20170222
  24. XARELTO [Concomitant]
     Active Substance: RIVAROXABAN
     Indication: CEREBRAL ISCHAEMIA
     Route: 065
     Dates: start: 20170221, end: 20170314
  25. CONCOR [Concomitant]
     Active Substance: BISOPROLOL FUMARATE
     Indication: PALPITATIONS
     Route: 065
     Dates: start: 20170428

REACTIONS (2)
  - Myocardial infarction [Recovered/Resolved]
  - Myocardial infarction [Recovered/Resolved]

NARRATIVE: CASE EVENT DATE: 20170316
